FAERS Safety Report 13930294 (Version 2)
Quarter: 2017Q3

REPORT INFORMATION
  Report Type: Report from Study
  Country: US (occurrence: US)
  Receive Date: 20170901
  Receipt Date: 20170914
  Transmission Date: 20171127
  Serious: Yes (Other)
  Sender: FDA-Public Use
  Company Number: PHEH2017US027566

PATIENT
  Age: 63 Year
  Sex: Female

DRUGS (2)
  1. PATADAY [Suspect]
     Active Substance: OLOPATADINE HYDROCHLORIDE
     Dosage: OU
     Route: 065
     Dates: start: 20170518, end: 201709
  2. PATADAY [Suspect]
     Active Substance: OLOPATADINE HYDROCHLORIDE
     Indication: HYPERSENSITIVITY
     Dosage: STARTED ON AN UNKNOWN DATE
     Route: 065

REACTIONS (4)
  - Eye irritation [Unknown]
  - Diabetes mellitus [Not Recovered/Not Resolved]
  - Blood pressure abnormal [Unknown]
  - Blood cholesterol abnormal [Unknown]

NARRATIVE: CASE EVENT DATE: 201409
